FAERS Safety Report 18870600 (Version 1)
Quarter: 2021Q1

REPORT INFORMATION
  Report Type: Spontaneous
  Country: US (occurrence: US)
  Receive Date: 20210209
  Receipt Date: 20210209
  Transmission Date: 20210420
  Serious: No
  Sender: FDA-Public Use
  Company Number: US-GLAXOSMITHKLINE-USCH2021002148

PATIENT
  Age: 71 Year
  Sex: Female

DRUGS (1)
  1. TARGET NICOTINE [Suspect]
     Active Substance: NICOTINE
     Indication: TOBACCO USER
     Dates: start: 20201230, end: 20210126

REACTIONS (2)
  - Pruritus [Unknown]
  - Rash macular [Unknown]
